FAERS Safety Report 13902786 (Version 2)
Quarter: 2017Q4

REPORT INFORMATION
  Report Type: Spontaneous
  Country: US (occurrence: US)
  Receive Date: 20170824
  Receipt Date: 20171011
  Transmission Date: 20180320
  Serious: No
  Sender: FDA-Public Use
  Company Number: GXBR2017US001678

PATIENT
  Age: 72 Year
  Sex: Female
  Weight: 68 kg

DRUGS (5)
  1. CYMBALTA [Concomitant]
     Active Substance: DULOXETINE HYDROCHLORIDE
     Indication: DEPRESSION
     Dosage: UNK
     Route: 065
  2. PRILOSEC [Concomitant]
     Active Substance: OMEPRAZOLE MAGNESIUM
     Indication: GASTROINTESTINAL DISORDER
     Dosage: UNK
     Route: 065
  3. ESTRADIOL. [Concomitant]
     Active Substance: ESTRADIOL
     Indication: PRODUCT USED FOR UNKNOWN INDICATION
     Dosage: UNK
     Route: 065
  4. CLOBETASOL PROPIONATE. [Suspect]
     Active Substance: CLOBETASOL PROPIONATE
     Indication: DERMATITIS
     Dosage: UNK UNK, QD (EVERY MORNING)
     Route: 065
     Dates: end: 2017
  5. FLUOCINOLONE ACETONIDE. [Suspect]
     Active Substance: FLUOCINOLONE ACETONIDE
     Indication: DERMATITIS
     Dosage: UNK UNK, QHS
     Route: 061
     Dates: start: 20170213, end: 20170217

REACTIONS (5)
  - Pruritus [Recovering/Resolving]
  - Folliculitis [Recovering/Resolving]
  - Drug ineffective [Unknown]
  - Hypersensitivity [Recovering/Resolving]
  - Yellow skin [Recovering/Resolving]

NARRATIVE: CASE EVENT DATE: 20170216
